FAERS Safety Report 6996413-4 (Version None)
Quarter: 2010Q3

REPORT INFORMATION
  Report Type: 
  Country: None (occurrence: None)
  Receive Date: 20100918
  Receipt Date: 20090224
  Transmission Date: 20110219
  Serious: No
  Sender: FDA-Public Use
  Company Number: US-WYE-H08336609

PATIENT
  Age: 16 Year
  Sex: Female

DRUGS (3)
  1. EFFEXOR XR [Suspect]
     Indication: DEPRESSION
     Route: 048
  2. ADDERALL XR 10 [Concomitant]
  3. LAMICTAL [Concomitant]

REACTIONS (1)
  - DRUG SCREEN FALSE POSITIVE [None]
